FAERS Safety Report 5412390-1 (Version None)
Quarter: 2007Q3

REPORT INFORMATION
  Report Type: 
  Country: None (occurrence: None)
  Receive Date: 20070713
  Receipt Date: 20070507
  Transmission Date: 20080115
  Serious: No
  Sender: FDA-Public Use
  Company Number: 2007SP001688

PATIENT
  Age: 85 Year
  Sex: Female
  Weight: 56.6996 kg

DRUGS (8)
  1. LUNESTA [Suspect]
     Indication: INSOMNIA
     Dosage: 2 MG; ORAL, 4 MG; 1X; ORAL, 3 MG; ORAL
     Route: 048
     Dates: start: 20070101, end: 20070101
  2. LUNESTA [Suspect]
     Indication: INSOMNIA
     Dosage: 2 MG; ORAL, 4 MG; 1X; ORAL, 3 MG; ORAL
     Route: 048
     Dates: start: 20070401, end: 20070501
  3. LUNESTA [Suspect]
     Indication: INSOMNIA
     Dosage: 2 MG; ORAL, 4 MG; 1X; ORAL, 3 MG; ORAL
     Route: 048
     Dates: start: 20070501
  4. AMBIEN [Concomitant]
  5. OXYBUTYN [Concomitant]
  6. RANITIDINE [Concomitant]
  7. ATENOLOL [Concomitant]
  8. AMLODIPINE BESYLATE [Concomitant]

REACTIONS (2)
  - DRUG INEFFECTIVE [None]
  - INSOMNIA [None]
